FAERS Safety Report 6968255-7 (Version None)
Quarter: 2010Q3

REPORT INFORMATION
  Report Type: 
  Country: None (occurrence: None)
  Receive Date: 20100907
  Receipt Date: 20100824
  Transmission Date: 20110219
  Serious: Yes (Hospitalization)
  Sender: FDA-Public Use
  Company Number: SE-ELI_LILLY_AND_COMPANY-SE201008006924

PATIENT
  Sex: Female
  Weight: 86.7 kg

DRUGS (18)
  1. DULOXETINE HYDROCHLORIDE [Suspect]
     Indication: DIABETIC NEUROPATHY
     Dosage: 30 MG, DAILY (1/D)
     Route: 048
     Dates: end: 20100824
  2. PREGABALIN [Suspect]
     Indication: DIABETIC NEUROPATHY
     Dosage: 600 MG, DAILY (1/D)
     Route: 048
     Dates: start: 20100421
  3. PREGABALIN [Suspect]
     Dosage: 150 MG, DAILY (1/D)
     Route: 048
     Dates: end: 20100824
  4. AERIUS [Concomitant]
     Dosage: 5 MG, UNKNOWN
     Route: 065
     Dates: start: 20070101, end: 20100820
  5. ACETAMINOPHEN [Concomitant]
     Indication: PAIN
     Dates: start: 20070101
  6. IRBESARTAN [Concomitant]
     Indication: HYPERTENSION
     Dates: start: 20030101, end: 20100820
  7. EMADINE [Concomitant]
     Indication: HYPERSENSITIVITY
     Dates: start: 20030101, end: 20100820
  8. INOLAXOL [Concomitant]
     Indication: CONSTIPATION
     Dates: start: 20080101, end: 20100820
  9. LOCACORTEN [Concomitant]
     Indication: PRURITUS
     Dates: start: 20070101, end: 20100820
  10. NULYTELY [Concomitant]
     Indication: CONSTIPATION
     Dates: start: 20080101, end: 20100820
  11. NEXIUM [Concomitant]
     Indication: REFLUX GASTRITIS
     Dosage: UNK, UNK
     Dates: start: 20030101, end: 20100820
  12. PAPAVERIN [Concomitant]
     Indication: BLADDER PAIN
     Dates: start: 20080101, end: 20100820
  13. PULMICORT [Concomitant]
     Dates: start: 20030101
  14. SIMVASTATIN [Concomitant]
     Dates: start: 20031201
  15. SPIRIVA [Concomitant]
     Route: 055
     Dates: start: 20030101, end: 20100820
  16. LEVOTHYROXINE SODIUM [Concomitant]
     Indication: HYPOTHYROIDISM
     Dates: start: 20030101
  17. INSULIN [Concomitant]
     Indication: DIABETES MELLITUS
     Dates: start: 20030101
  18. METOCLOPRAMIDE [Concomitant]
     Indication: NAUSEA
     Dates: start: 20080101

REACTIONS (1)
  - CONCUSSION [None]
